FAERS Safety Report 21329879 (Version 1)
Quarter: 2022Q3

REPORT INFORMATION
  Report Type: Spontaneous
  Country: US (occurrence: US)
  Receive Date: 20220913
  Receipt Date: 20220913
  Transmission Date: 20221027
  Serious: No
  Sender: FDA-Public Use
  Company Number: US-drreddys-SPO/USA/22/0154188

PATIENT
  Age: 17 Year
  Sex: Female

DRUGS (3)
  1. ZENATANE [Suspect]
     Active Substance: ISOTRETINOIN
     Indication: Acne
     Dosage: RMA ISSUE DATE: 29 JULY 2022, 12:53:52 PM; 03 JUNE 2022, 01:02:58 PM
  2. ZENATANE [Suspect]
     Active Substance: ISOTRETINOIN
     Dosage: RMA ISSUE DATE:  21 JANUARY 2022, 11:52:17 AM, 22 APRIL 2022, 10:43:08 AM
  3. ZENATANE [Suspect]
     Active Substance: ISOTRETINOIN
     Dosage: 1RMA ISSUE DATE: 11 MARCH 2022, 07:56:16 AM

REACTIONS (1)
  - Treatment noncompliance [Unknown]
